FAERS Safety Report 13055341 (Version 1)
Quarter: 2016Q4

REPORT INFORMATION
  Report Type: Spontaneous
  Country: US (occurrence: US)
  Receive Date: 20161222
  Receipt Date: 20161222
  Transmission Date: 20170207
  Serious: No
  Sender: FDA-Public Use
  Company Number: US-ELI_LILLY_AND_COMPANY-US201612007708

PATIENT
  Age: 52 Year
  Sex: Female

DRUGS (4)
  1. HUMALOG MIX75/25 [Suspect]
     Active Substance: INSULIN LISPRO
     Indication: PRODUCT USED FOR UNKNOWN INDICATION
     Dosage: UNK, UNKNOWN
     Route: 065
  2. HUMALOG [Suspect]
     Active Substance: INSULIN LISPRO
     Indication: DIABETES MELLITUS
     Dosage: 12 U, TID
     Route: 065
     Dates: start: 201608
  3. HUMALOG [Suspect]
     Active Substance: INSULIN LISPRO
     Dosage: 12 U, TID
     Route: 065
  4. LANTUS [Concomitant]
     Active Substance: INSULIN GLARGINE
     Dosage: 20 U, QD
     Route: 065

REACTIONS (4)
  - Intercepted product selection error [Unknown]
  - Intercepted drug administration error [Unknown]
  - Blood glucose abnormal [Unknown]
  - Insulin resistance [Unknown]

NARRATIVE: CASE EVENT DATE: 201611
